FAERS Safety Report 23238942 (Version 1)
Quarter: 2023Q4

REPORT INFORMATION
  Report Type: Report from Study
  Country: CO (occurrence: CO)
  Receive Date: 20231129
  Receipt Date: 20231129
  Transmission Date: 20240110
  Serious: Yes (Hospitalization)
  Sender: FDA-Public Use
  Company Number: CO-AstraZeneca-2023A266723

PATIENT
  Age: 136 Day
  Sex: Female

DRUGS (1)
  1. SYNAGIS [Suspect]
     Active Substance: PALIVIZUMAB
     Indication: Antiviral prophylaxis
     Dosage: 15 MG/KG, MONTHLY
     Route: 030
     Dates: start: 20230715

REACTIONS (1)
  - Tracheal stenosis [Not Recovered/Not Resolved]

NARRATIVE: CASE EVENT DATE: 20231027
